FAERS Safety Report 5605002-5 (Version None)
Quarter: 2008Q1

REPORT INFORMATION
  Report Type: 
  Country: None (occurrence: None)
  Receive Date: 20080128
  Receipt Date: 20080124
  Transmission Date: 20080703
  Serious: Yes (Other)
  Sender: FDA-Public Use
  Company Number: US-RANBAXY-2007US-12084

PATIENT

DRUGS (2)
  1. ISOTRETINOIN [Suspect]
     Indication: DRUG USE FOR UNKNOWN INDICATION
     Dosage: 20 MG, UNK
     Route: 048
     Dates: start: 20071016, end: 20071120
  2. ISOTRETINOIN [Suspect]
     Dosage: 20 MG, UNK
     Route: 048
     Dates: start: 20071220

REACTIONS (1)
  - HAEMATOCHEZIA [None]
